FAERS Safety Report 9310245 (Version 1)
Quarter: 2013Q2

REPORT INFORMATION
  Report Type: Report from Study
  Country: BR (occurrence: BR)
  Receive Date: 20130527
  Receipt Date: 20130527
  Transmission Date: 20140414
  Serious: Yes (Death, Hospitalization, Other)
  Sender: FDA-Public Use
  Company Number: PHHY2013BR052480

PATIENT
  Age: 82 Year
  Sex: Female

DRUGS (4)
  1. DIOVAN [Suspect]
     Indication: HYPERTENSION
     Dosage: 1 DF,(320 MG)  QD
     Route: 048
  2. OSCAL D                            /00944201/ [Concomitant]
     Indication: OSTEOPOROSIS
  3. AAS [Concomitant]
     Indication: BLOOD DISORDER
  4. VASTAREL MR [Concomitant]

REACTIONS (4)
  - Pancreatic carcinoma [Fatal]
  - Pancreatitis [Fatal]
  - Malaise [Fatal]
  - Dementia Alzheimer^s type [Not Recovered/Not Resolved]
